FAERS Safety Report 10206823 (Version 1)
Quarter: 2014Q2

REPORT INFORMATION
  Report Type: Spontaneous
  Country: US (occurrence: US)
  Receive Date: 20140530
  Receipt Date: 20140530
  Transmission Date: 20141212
  Serious: Yes (Other)
  Sender: FDA-Public Use
  Company Number: CHPA2014US007219

PATIENT
  Age: 90 Year
  Sex: Female

DRUGS (1)
  1. LAMISIL AT ATHLETE^S FOOT CREAM [Suspect]
     Dosage: UNK
     Route: 061

REACTIONS (2)
  - Onychomadesis [Not Recovered/Not Resolved]
  - Wrong technique in drug usage process [Unknown]
